FAERS Safety Report 15096153 (Version 4)
Quarter: 2018Q4

REPORT INFORMATION
  Report Type: Spontaneous
  Country: US (occurrence: US)
  Receive Date: 20180702
  Receipt Date: 20181126
  Transmission Date: 20190204
  Serious: No
  Sender: FDA-Public Use
  Company Number: US-JNJFOC-20180624440

PATIENT
  Sex: Female

DRUGS (4)
  1. KETOCONAZOLE. [Suspect]
     Active Substance: KETOCONAZOLE
     Indication: FOLLICULITIS
     Route: 061
  2. PROTOPIC [Concomitant]
     Active Substance: TACROLIMUS
     Indication: FOLLICULITIS
     Route: 061
  3. PROTOPIC [Concomitant]
     Active Substance: TACROLIMUS
     Indication: PRURITUS
     Route: 061
  4. KETOCONAZOLE. [Suspect]
     Active Substance: KETOCONAZOLE
     Indication: PRURITUS
     Route: 061

REACTIONS (2)
  - Product odour abnormal [Unknown]
  - Drug ineffective for unapproved indication [Unknown]
